FAERS Safety Report 8825738 (Version 1)
Quarter: 2012Q4

REPORT INFORMATION
  Report Type: 
  Country: CH (occurrence: CH)
  Receive Date: 20121004
  Receipt Date: 20121004
  Transmission Date: 20130627
  Serious: Yes (Hospitalization)
  Sender: FDA-Public Use
  Company Number: CH-ASTRAZENECA-2012SE74561

PATIENT
  Age: 76 Year
  Sex: Male

DRUGS (9)
  1. NEXIUM [Suspect]
     Route: 048
     Dates: end: 20120801
  2. XARELTO [Concomitant]
     Indication: ATRIAL FIBRILLATION
     Route: 048
     Dates: start: 20120710, end: 20120814
  3. XARELTO [Concomitant]
     Indication: ATRIAL FLUTTER
     Route: 048
     Dates: start: 20120710, end: 20120814
  4. BELOC ZOK [Concomitant]
     Indication: ATRIAL FIBRILLATION
     Route: 048
     Dates: start: 20120630
  5. BELOC ZOK [Concomitant]
     Indication: ATRIAL FLUTTER
     Route: 048
     Dates: start: 20120630
  6. MADOPAR [Concomitant]
     Indication: PARKINSON^S DISEASE
     Route: 048
  7. SIFROL [Concomitant]
     Indication: EPILEPSY
     Route: 048
  8. SIFROL [Concomitant]
     Indication: PARKINSON^S DISEASE
     Route: 048
  9. DAFALGAN [Concomitant]
     Route: 048

REACTIONS (4)
  - Hepatocellular injury [Recovering/Resolving]
  - Abdominal pain [Recovered/Resolved]
  - Nausea [Recovered/Resolved]
  - Diarrhoea [Recovered/Resolved]
